FAERS Safety Report 5216332-3 (Version None)
Quarter: 2007Q1

REPORT INFORMATION
  Report Type: 
  Country: None (occurrence: None)
  Receive Date: 20070123
  Receipt Date: 20070112
  Transmission Date: 20070707
  Serious: Yes (Other)
  Sender: FDA-Public Use
  Company Number: US-PFIZER INC-2007004430

PATIENT
  Sex: Male
  Weight: 81.6 kg

DRUGS (1)
  1. ZYRTEC [Suspect]
     Indication: HYPERSENSITIVITY

REACTIONS (7)
  - ACCIDENTAL OVERDOSE [None]
  - ANXIETY [None]
  - FLUSHING [None]
  - HALLUCINATION [None]
  - HEART RATE ABNORMAL [None]
  - INSOMNIA [None]
  - PALPITATIONS [None]
